FAERS Safety Report 11126467 (Version 1)
Quarter: 2015Q2

REPORT INFORMATION
  Report Type: Report from Study
  Country: US (occurrence: None)
  Receive Date: 20150504
  Receipt Date: 20150504
  Transmission Date: 20150821
  Serious: Yes (Hospitalization)
  Sender: FDA-Public Use
  Company Number: UNT-2015-004889

PATIENT
  Age: 3 Year
  Sex: Male
  Weight: 15.7 kg

DRUGS (14)
  1. CH14.18 (UT-CH14.18 / NCI-CH14.18) INFUSION [Suspect]
     Active Substance: DINUTUXIMAB
     Indication: NEUROBLASTOMA
     Dates: start: 20150323, end: 20150326
  2. 13-CIS-RETINOIC ACID [Suspect]
     Active Substance: ISOTRETINOIN
     Indication: NEUROBLASTOMA
     Route: 048
     Dates: start: 20150331, end: 20150402
  3. HYDROXYZINE [Concomitant]
     Active Substance: HYDROXYZINE\HYDROXYZINE HYDROCHLORIDE
  4. MELATONIN [Concomitant]
     Active Substance: MELATONIN
  5. MORPHINE [Concomitant]
     Active Substance: MORPHINE
  6. GRANISETRON [Concomitant]
     Active Substance: GRANISETRON
  7. OXYCODONE [Concomitant]
     Active Substance: OXYCODONE
  8. DOCUSTATE [Concomitant]
  9. HEPARIN [Concomitant]
     Active Substance: HEPARIN SODIUM
  10. LANSOPRAZOLE. [Concomitant]
     Active Substance: LANSOPRAZOLE
  11. POLYVITAMIN /02273501/ (ASCORBIC ACID, CYANOCOBALAMIN, ERGOCALCIFEROL, FLUORINE, NICOTINAMIDE, PYRIDOXINE HYDROCHLORIDE, RETINOL, RIBOFLAVIN, THIAMINE HYDROCHLORIDE, TOCOPHERYL ACETATE) [Concomitant]
  12. GM-CSF (GRANULOCYTE MACROPHAGE COLONY STIM FACTOR) [Suspect]
     Active Substance: GRANULOCYTE-MACROPHAGE COLONY-STIMULATING FACTOR
     Indication: NEUROBLASTOMA
     Dates: start: 20150320, end: 20150402
  13. SULFAMETHOXAZOLE AND TRIMETHOPRIM [Concomitant]
     Active Substance: SULFAMETHOXAZOLE\TRIMETHOPRIM
  14. HYDROCORTISONE. [Concomitant]
     Active Substance: HYDROCORTISONE

REACTIONS (6)
  - Bladder dilatation [None]
  - Atonic urinary bladder [None]
  - Urinary retention [None]
  - Urine output decreased [None]
  - Neuropathy peripheral [None]
  - Pyelocaliectasis [None]

NARRATIVE: CASE EVENT DATE: 20150323
